FAERS Safety Report 11663415 (Version 1)
Quarter: 2015Q4

REPORT INFORMATION
  Report Type: Spontaneous
  Country: US (occurrence: US)
  Receive Date: 20151027
  Receipt Date: 20151027
  Transmission Date: 20160304
  Serious: No
  Sender: FDA-Public Use
  Company Number: US-PFIZER INC-2015343660

PATIENT
  Age: 61 Year
  Sex: Female

DRUGS (1)
  1. IBRANCE [Suspect]
     Active Substance: PALBOCICLIB
     Indication: BREAST CANCER METASTATIC
     Dosage: 125 MG, CYCLIC (1D-21D Q 28D)
     Route: 048
     Dates: start: 20150612, end: 20151012

REACTIONS (2)
  - Disease progression [Unknown]
  - Breast cancer [Unknown]

NARRATIVE: CASE EVENT DATE: 20151012
